FAERS Safety Report 7457725-3 (Version None)
Quarter: 2011Q2

REPORT INFORMATION
  Report Type: 
  Country: None (occurrence: None)
  Receive Date: 20110504
  Receipt Date: 20110429
  Transmission Date: 20111010
  Serious: Yes (Life-Threatening, Other)
  Sender: FDA-Public Use
  Company Number: JP-BRACCO-004668

PATIENT
  Sex: Male
  Weight: 68 kg

DRUGS (6)
  1. MUCODYNE [Concomitant]
  2. CODEINE [Concomitant]
  3. IOPAMIDOL [Suspect]
     Indication: COMPUTERISED TOMOGRAM
     Route: 042
     Dates: start: 20110309, end: 20110309
  4. IOPAMIDOL [Suspect]
     Indication: LUNG NEOPLASM MALIGNANT
     Route: 042
     Dates: start: 20110309, end: 20110309
  5. MUCOSOLVAN [Concomitant]
  6. COUMADIN [Concomitant]

REACTIONS (5)
  - UNRESPONSIVE TO STIMULI [None]
  - BLOOD PRESSURE DECREASED [None]
  - FALL [None]
  - PALLOR [None]
  - HYPOPNOEA [None]
